FAERS Safety Report 8002461-8 (Version None)
Quarter: 2011Q4

REPORT INFORMATION
  Report Type: 
  Country: None (occurrence: None)
  Receive Date: 20111222
  Receipt Date: 20111212
  Transmission Date: 20120403
  Serious: Yes (Hospitalization)
  Sender: FDA-Public Use
  Company Number: CA-JNJFOC-20111207011

PATIENT
  Sex: Female
  Weight: 65 kg

DRUGS (6)
  1. FOLIC ACID [Concomitant]
     Route: 065
  2. METHOTREXATE [Concomitant]
     Route: 065
  3. VITAMIN D [Concomitant]
     Route: 065
  4. REMICADE [Suspect]
     Indication: CROHN'S DISEASE
     Route: 042
     Dates: start: 20110509
  5. REMICADE [Suspect]
     Dosage: SIXTH INFUSION
     Route: 042
     Dates: start: 20111212
  6. PANTOPRAZOLE [Concomitant]
     Route: 065

REACTIONS (4)
  - DEHYDRATION [None]
  - ABDOMINAL PAIN [None]
  - DIARRHOEA [None]
  - TONSILLITIS [None]
